FAERS Safety Report 6477323 (Version 2)
Quarter: 2013Q3

REPORT INFORMATION
  Report Type: Spontaneous
  Country: US (occurrence: US)
  Receive Date: 20071129
  Receipt Date: 20130909
  Transmission Date: 20140515
  Serious: Yes (Death, Hospitalization)
  Sender: FDA-Public Use
  Company Number: US-ROCHE-532793

PATIENT
  Sex: Female

DRUGS (1)
  1. PEGASYS [Suspect]
     Indication: HEPATITIS C
     Dosage: PATIENT TOOK ONLY 1 OR 2 DOSES
     Route: 065

REACTIONS (4)
  - Hepatic cirrhosis [Fatal]
  - Hepatic failure [Fatal]
  - White blood cell count decreased [Recovered/Resolved]
  - Red blood cell count decreased [Unknown]
